FAERS Safety Report 5255160-X (Version None)
Quarter: 2007Q1

REPORT INFORMATION
  Report Type: 
  Country: None (occurrence: None)
  Receive Date: 20070305
  Receipt Date: 20070228
  Transmission Date: 20070707
  Serious: Yes (Hospitalization)
  Sender: FDA-Public Use
  Company Number: FR-AVENTIS-200710721FR

PATIENT
  Age: 43 Year
  Sex: Male
  Weight: 80 kg

DRUGS (6)
  1. RIFINAH [Suspect]
     Indication: DRUG USE FOR UNKNOWN INDICATION
     Route: 048
     Dates: start: 20070103, end: 20070128
  2. BIOCALYPTOL [Suspect]
     Route: 048
     Dates: start: 20070126, end: 20070128
  3. BIOCALYPTOL [Suspect]
     Indication: COUGH
     Route: 048
     Dates: start: 20070126, end: 20070128
  4. DAFALGAN                           /00020001/ [Suspect]
     Route: 048
     Dates: start: 20070126, end: 20070128
  5. DAFALGAN                           /00020001/ [Suspect]
     Indication: COUGH
     Route: 048
     Dates: start: 20070126, end: 20070128
  6. PENTASA [Concomitant]
     Route: 048
     Dates: start: 20061115

REACTIONS (7)
  - ANGIOEDEMA [None]
  - CELL DEATH [None]
  - CHILLS [None]
  - HYPOTENSION [None]
  - PRURITUS [None]
  - PYREXIA [None]
  - URTICARIA [None]
